FAERS Safety Report 10451327 (Version 1)
Quarter: 2014Q3

REPORT INFORMATION
  Report Type: Spontaneous
  Country: AU (occurrence: AU)
  Receive Date: 20140912
  Receipt Date: 20140912
  Transmission Date: 20150326
  Serious: Yes (Hospitalization, Other)
  Sender: FDA-Public Use
  Company Number: AU-ELI_LILLY_AND_COMPANY-AU201409003214

PATIENT
  Age: 46 Year
  Sex: Female

DRUGS (1)
  1. ZYPREXA [Suspect]
     Active Substance: OLANZAPINE
     Indication: PRODUCT USED FOR UNKNOWN INDICATION
     Dosage: 30 MG, QD
     Route: 048
     Dates: start: 20080101, end: 20131007

REACTIONS (6)
  - Logorrhoea [Recovering/Resolving]
  - Convulsion [Recovering/Resolving]
  - Mania [Recovering/Resolving]
  - Injury [Recovering/Resolving]
  - Emotional distress [Recovering/Resolving]
  - Prescribed overdose [Unknown]
